FAERS Safety Report 17038954 (Version 5)
Quarter: 2022Q1

REPORT INFORMATION
  Report Type: Spontaneous
  Country: CA (occurrence: CA)
  Receive Date: 20191115
  Receipt Date: 20220125
  Transmission Date: 20220424
  Serious: Yes (Life-Threatening)
  Sender: FDA-Public Use
  Company Number: CA-009507513-1911CAN001523

PATIENT
  Age: 44 Year
  Sex: Female

DRUGS (69)
  1. INVANZ [Suspect]
     Active Substance: ERTAPENEM SODIUM
     Indication: Hidradenitis
     Dosage: UNK
     Route: 042
  2. INVANZ [Suspect]
     Active Substance: ERTAPENEM SODIUM
     Indication: Product used for unknown indication
  3. ACZONE [Suspect]
     Active Substance: DAPSONE
     Indication: Hidradenitis
     Dosage: UNK
     Route: 065
  4. ACZONE [Suspect]
     Active Substance: DAPSONE
     Indication: Product used for unknown indication
     Dosage: UNK
     Route: 048
  5. ACZONE [Suspect]
     Active Substance: DAPSONE
     Dosage: UNK
     Route: 061
  6. ACZONE [Suspect]
     Active Substance: DAPSONE
     Dosage: UNK
     Route: 061
  7. ACZONE [Suspect]
     Active Substance: DAPSONE
     Dosage: UNK
     Route: 065
  8. ACZONE [Suspect]
     Active Substance: DAPSONE
     Dosage: UNK
     Route: 048
  9. ACZONE [Suspect]
     Active Substance: DAPSONE
     Dosage: UNK
     Route: 061
  10. ACZONE [Suspect]
     Active Substance: DAPSONE
     Dosage: UNK
     Route: 061
  11. AMOXICILLIN\CLAVULANATE POTASSIUM [Suspect]
     Active Substance: AMOXICILLIN\CLAVULANATE POTASSIUM
     Indication: Hidradenitis
     Dosage: UNK
     Route: 065
  12. AMOXICILLIN\CLAVULANATE POTASSIUM [Suspect]
     Active Substance: AMOXICILLIN\CLAVULANATE POTASSIUM
     Indication: Product used for unknown indication
     Dosage: UNK
     Route: 065
  13. AMOXICILLIN [Suspect]
     Active Substance: AMOXICILLIN
     Indication: Hidradenitis
     Dosage: UNK
     Route: 065
  14. ARESTIN [Suspect]
     Active Substance: MINOCYCLINE HYDROCHLORIDE
     Indication: Hidradenitis
     Dosage: EXTENDED RELEASE
     Route: 065
  15. ARESTIN [Suspect]
     Active Substance: MINOCYCLINE HYDROCHLORIDE
     Indication: Product used for unknown indication
  16. MINOCYCLINE HYDROCHLORIDE [Suspect]
     Active Substance: MINOCYCLINE HYDROCHLORIDE
     Indication: Product used for unknown indication
     Dosage: UNK
     Route: 048
  17. MINOCYCLINE HYDROCHLORIDE [Suspect]
     Active Substance: MINOCYCLINE HYDROCHLORIDE
     Indication: Hidradenitis
     Dosage: UNK
     Route: 065
  18. MINOCYCLINE HYDROCHLORIDE [Suspect]
     Active Substance: MINOCYCLINE HYDROCHLORIDE
     Dosage: UNK
     Route: 048
  19. MINOCYCLINE HYDROCHLORIDE [Suspect]
     Active Substance: MINOCYCLINE HYDROCHLORIDE
     Dosage: UNK
     Route: 065
  20. DOXYCYCLINE HYCLATE [Suspect]
     Active Substance: DOXYCYCLINE HYCLATE
     Indication: Hidradenitis
     Dosage: UNK
     Route: 065
  21. DOXYCYCLINE HYCLATE [Suspect]
     Active Substance: DOXYCYCLINE HYCLATE
     Indication: Product used for unknown indication
     Dosage: UNK
     Route: 061
  22. DOXYCYCLINE HYCLATE [Suspect]
     Active Substance: DOXYCYCLINE HYCLATE
     Dosage: DOSAGE FORM: NOT SPECIFIED
     Route: 065
  23. DOXYCYCLINE HYCLATE [Suspect]
     Active Substance: DOXYCYCLINE HYCLATE
     Dosage: UNK
     Route: 065
  24. DOXYCYCLINE HYCLATE [Suspect]
     Active Substance: DOXYCYCLINE HYCLATE
     Dosage: UNK
     Route: 061
  25. DOXYCYCLINE HYCLATE [Suspect]
     Active Substance: DOXYCYCLINE HYCLATE
     Dosage: DOSAGE FORM: NOT SPECIFIED
     Route: 065
  26. RIFAMPIN [Suspect]
     Active Substance: RIFAMPIN
     Indication: Hidradenitis
     Dosage: UNK
     Route: 065
  27. RIFAMPIN [Suspect]
     Active Substance: RIFAMPIN
     Indication: Product used for unknown indication
     Dosage: DOSAGE FORM: NOT SPECIFIED
     Route: 065
  28. RIFAMPIN [Suspect]
     Active Substance: RIFAMPIN
     Dosage: UNK
     Route: 065
  29. RIFAMPIN [Suspect]
     Active Substance: RIFAMPIN
     Dosage: DOSAGE FORM: NOT SPECIFIED
     Route: 065
  30. RIFAMPIN [Suspect]
     Active Substance: RIFAMPIN
     Indication: Hidradenitis
     Dosage: 150 MILLIGRAM
     Route: 065
  31. RIFAMPIN [Suspect]
     Active Substance: RIFAMPIN
     Dosage: UNK
     Route: 065
  32. RIFAMPIN [Suspect]
     Active Substance: RIFAMPIN
     Dosage: 150 MILLIGRAM
     Route: 065
  33. RIFAMPIN [Suspect]
     Active Substance: RIFAMPIN
     Dosage: UNK
     Route: 065
  34. PREDNISONE [Suspect]
     Active Substance: PREDNISONE
     Indication: Hidradenitis
     Route: 065
  35. PREDNISONE [Suspect]
     Active Substance: PREDNISONE
     Indication: Product used for unknown indication
     Dosage: DOSAGE FORM: NOT SPECIFIED
     Route: 065
  36. PREDNISONE [Suspect]
     Active Substance: PREDNISONE
     Route: 065
  37. PREDNISONE [Suspect]
     Active Substance: PREDNISONE
     Dosage: DOSAGE FORM: NOT SPECIFIED
     Route: 065
  38. TRIAMCINOLONE ACETONIDE [Suspect]
     Active Substance: TRIAMCINOLONE ACETONIDE
     Indication: Hidradenitis
     Dosage: UNK
     Route: 026
  39. TRIAMCINOLONE ACETONIDE [Suspect]
     Active Substance: TRIAMCINOLONE ACETONIDE
     Indication: Product used for unknown indication
     Dosage: UNK
     Route: 026
  40. CLINDAMYCIN HYDROCHLORIDE [Suspect]
     Active Substance: CLINDAMYCIN HYDROCHLORIDE
     Indication: Hidradenitis
     Dosage: UNK
     Route: 061
  41. CLINDAMYCIN HYDROCHLORIDE [Suspect]
     Active Substance: CLINDAMYCIN HYDROCHLORIDE
     Indication: Product used for unknown indication
     Dosage: UNK
     Route: 065
  42. CLINDAMYCIN HYDROCHLORIDE [Suspect]
     Active Substance: CLINDAMYCIN HYDROCHLORIDE
     Dosage: UNK
     Route: 061
  43. CLINDAMYCIN HYDROCHLORIDE [Suspect]
     Active Substance: CLINDAMYCIN HYDROCHLORIDE
     Dosage: UNK
     Route: 065
  44. CLINDAMYCIN PHOSPHATE [Suspect]
     Active Substance: CLINDAMYCIN PHOSPHATE
     Indication: Hidradenitis
     Dosage: UNK
     Route: 065
  45. CLINDAMYCIN PHOSPHATE [Suspect]
     Active Substance: CLINDAMYCIN PHOSPHATE
     Dosage: UNK
     Route: 061
  46. CLINDAMYCIN PHOSPHATE [Suspect]
     Active Substance: CLINDAMYCIN PHOSPHATE
     Dosage: UNK
     Route: 061
  47. CLINDAMYCIN PHOSPHATE [Suspect]
     Active Substance: CLINDAMYCIN PHOSPHATE
     Dosage: UNK
     Route: 065
  48. CLINDAMYCIN PHOSPHATE [Suspect]
     Active Substance: CLINDAMYCIN PHOSPHATE
     Dosage: UNK
     Route: 061
  49. CLINDAMYCIN PHOSPHATE [Suspect]
     Active Substance: CLINDAMYCIN PHOSPHATE
     Dosage: UNK
     Route: 061
  50. ISOTRETINOIN [Suspect]
     Active Substance: ISOTRETINOIN
     Indication: Hidradenitis
     Dosage: UNK
     Route: 065
  51. ISOTRETINOIN [Suspect]
     Active Substance: ISOTRETINOIN
     Indication: Product used for unknown indication
     Dosage: DOSAGE FORM: NOT SPECIFIED
     Route: 065
  52. ISOTRETINOIN [Suspect]
     Active Substance: ISOTRETINOIN
     Dosage: UNK
     Route: 065
  53. ISOTRETINOIN [Suspect]
     Active Substance: ISOTRETINOIN
     Dosage: DOSAGE FORM: NOT SPECIFIED
     Route: 065
  54. AVELOX [Suspect]
     Active Substance: MOXIFLOXACIN HYDROCHLORIDE
     Indication: Hidradenitis
     Route: 065
  55. AVELOX [Suspect]
     Active Substance: MOXIFLOXACIN HYDROCHLORIDE
     Indication: Product used for unknown indication
     Route: 065
  56. MOXIFLOXACIN [Suspect]
     Active Substance: MOXIFLOXACIN
     Indication: Hidradenitis
     Dosage: UNK
     Route: 065
  57. MOXIFLOXACIN [Suspect]
     Active Substance: MOXIFLOXACIN
     Dosage: UNK
     Route: 065
  58. NORITATE [Suspect]
     Active Substance: METRONIDAZOLE
     Indication: Hidradenitis
     Dosage: DOSAGE FORM: NOT SPECIFIED
     Route: 061
  59. NORITATE [Suspect]
     Active Substance: METRONIDAZOLE
     Indication: Product used for unknown indication
     Dosage: DOSAGE FORM: NOT SPECIFIED
     Route: 065
  60. NORITATE [Suspect]
     Active Substance: METRONIDAZOLE
     Dosage: UNK
     Route: 061
  61. NORITATE [Suspect]
     Active Substance: METRONIDAZOLE
     Dosage: DOSAGE FORM: NOT SPECIFIED
     Route: 061
  62. NORITATE [Suspect]
     Active Substance: METRONIDAZOLE
     Dosage: DOSAGE FORM: NOT SPECIFIED
     Route: 065
  63. NORITATE [Suspect]
     Active Substance: METRONIDAZOLE
     Dosage: UNK
     Route: 061
  64. TETRACYCLINE [Suspect]
     Active Substance: TETRACYCLINE
     Indication: Hidradenitis
     Dosage: UNK
     Route: 065
  65. TETRACYCLINE [Suspect]
     Active Substance: TETRACYCLINE
     Indication: Product used for unknown indication
     Dosage: UNK
     Route: 065
  66. ZINC [Suspect]
     Active Substance: ZINC
     Indication: Hidradenitis
     Route: 065
  67. ZINC [Suspect]
     Active Substance: ZINC
     Indication: Product used for unknown indication
     Route: 065
  68. AMOXICILLIN [Suspect]
     Active Substance: AMOXICILLIN
     Indication: Hidradenitis
     Route: 065
  69. AMOXICILLIN [Suspect]
     Active Substance: AMOXICILLIN
     Route: 065

REACTIONS (11)
  - Condition aggravated [Unknown]
  - Drug ineffective [Unknown]
  - Drug intolerance [Unknown]
  - Mobility decreased [Unknown]
  - Pain [Unknown]
  - Scar [Unknown]
  - Skin lesion [Unknown]
  - Skin odour abnormal [Unknown]
  - Suicidal ideation [Unknown]
  - Treatment failure [Unknown]
  - Wound secretion [Unknown]
